FAERS Safety Report 25330454 (Version 1)
Quarter: 2025Q2

REPORT INFORMATION
  Report Type: Spontaneous
  Country: US (occurrence: US)
  Receive Date: 20250519
  Receipt Date: 20250519
  Transmission Date: 20250717
  Serious: Yes (Other)
  Sender: BAXTER
  Company Number: US-BAXTER-2025BAX015454

PATIENT
  Age: 80 Year
  Sex: Male

DRUGS (2)
  1. DOXORUBICIN [Suspect]
     Active Substance: DOXORUBICIN
     Indication: Kaposi^s sarcoma
     Dosage: 20 MG/M2, 3X A WEEK, EXTENDED PEGYLATED LIPOSOMAL DOXORUBICIN (PLD) MONOTHERAPY
     Route: 065
  2. DOXORUBICIN [Suspect]
     Active Substance: DOXORUBICIN
     Indication: Metastatic neoplasm

REACTIONS (12)
  - Renal-limited thrombotic microangiopathy [Recovering/Resolving]
  - Proteinuria [Recovering/Resolving]
  - Blood creatinine increased [Recovering/Resolving]
  - Acute kidney injury [Recovering/Resolving]
  - Glomerulonephritis membranoproliferative [Recovering/Resolving]
  - Swelling [Recovering/Resolving]
  - Diffuse mesangial sclerosis [Recovering/Resolving]
  - Nodule [Recovering/Resolving]
  - Focal segmental glomerulosclerosis [Recovering/Resolving]
  - Renal tubular injury [Recovering/Resolving]
  - Kidney fibrosis [Recovering/Resolving]
  - Renal tubular atrophy [Recovering/Resolving]
